FAERS Safety Report 6208845-2 (Version None)
Quarter: 2009Q2

REPORT INFORMATION
  Report Type: 
  Country: None (occurrence: None)
  Receive Date: 20090529
  Receipt Date: 20090521
  Transmission Date: 20091009
  Serious: Yes (Other)
  Sender: FDA-Public Use
  Company Number: A0785584A

PATIENT
  Age: 58 Year
  Sex: Male

DRUGS (4)
  1. AVANDAMET [Suspect]
     Route: 048
     Dates: start: 20010101, end: 20060101
  2. AVANDIA [Suspect]
     Route: 048
     Dates: start: 20010101, end: 20060101
  3. INSULIN [Concomitant]
  4. ZOCOR [Concomitant]

REACTIONS (5)
  - BLOOD GLUCOSE INCREASED [None]
  - EYE HAEMORRHAGE [None]
  - EYE PRURITUS [None]
  - HEADACHE [None]
  - LACRIMATION INCREASED [None]
